FAERS Safety Report 5320721-6 (Version None)
Quarter: 2007Q2

REPORT INFORMATION
  Report Type: 
  Country: None (occurrence: None)
  Receive Date: 20070509
  Receipt Date: 20070430
  Transmission Date: 20071010
  Serious: Yes (Other)
  Sender: FDA-Public Use
  Company Number: DE-PFIZER INC-2007035608

PATIENT
  Sex: Female

DRUGS (3)
  1. FRAGMIN [Suspect]
     Route: 058
     Dates: start: 20070322, end: 20070324
  2. FRAGMIN [Suspect]
     Route: 058
     Dates: start: 20070330, end: 20070401
  3. HEPARIN [Concomitant]

REACTIONS (2)
  - ERYTHEMA MULTIFORME [None]
  - HEPARIN-INDUCED THROMBOCYTOPENIA [None]
